FAERS Safety Report 23279526 (Version 1)
Quarter: 2023Q4

REPORT INFORMATION
  Report Type: Spontaneous
  Country: US (occurrence: US)
  Receive Date: 20231210
  Receipt Date: 20231210
  Transmission Date: 20240109
  Serious: Yes (Other)
  Sender: FDA-Public Use
  Company Number: US-ENDO-CASE-0049195

PATIENT

DRUGS (2)
  1. PERCOCET [Suspect]
     Active Substance: ACETAMINOPHEN\OXYCODONE HYDROCHLORIDE
  2. ACETAMINOPHEN\OXYCODONE HYDROCHLORIDE [Suspect]
     Active Substance: ACETAMINOPHEN\OXYCODONE HYDROCHLORIDE

REACTIONS (13)
  - Dependence [Unknown]
  - Blindness [Unknown]
  - Headache [Unknown]
  - Amnesia [Unknown]
  - Dry mouth [Unknown]
  - Dry eye [Unknown]
  - Anxiety [Unknown]
  - Insomnia [Unknown]
  - Anger [Unknown]
  - Constipation [Unknown]
  - Nausea [Unknown]
  - Tremor [Unknown]
  - Confusional state [Unknown]
